FAERS Safety Report 10180231 (Version 2)
Quarter: 2014Q2

REPORT INFORMATION
  Report Type: Spontaneous
  Country: US (occurrence: US)
  Receive Date: 20140519
  Receipt Date: 20140519
  Transmission Date: 20141212
  Serious: No
  Sender: FDA-Public Use
  Company Number: US-AMGEN INC.-USASP2013077465

PATIENT
  Age: 65 Year
  Sex: Male

DRUGS (4)
  1. PROLIA [Suspect]
     Indication: BONE DENSITY INCREASED
     Dosage: UNK
     Route: 065
     Dates: start: 201210
  2. LUPRON [Concomitant]
     Dosage: UNK
     Route: 065
     Dates: start: 201107
  3. ALLOPURINOL [Concomitant]
     Indication: NEPHROLITHIASIS
     Dosage: 300 MG, QD
     Route: 065
  4. HYDROCHLOORTHIAZIDE [Concomitant]
     Indication: NEPHROLITHIASIS
     Dosage: 50 MG, QD
     Route: 065

REACTIONS (2)
  - Tooth resorption [Unknown]
  - Dental caries [Unknown]
